FAERS Safety Report 17724263 (Version 1)
Quarter: 2020Q2

REPORT INFORMATION
  Report Type: Spontaneous
  Country: US (occurrence: US)
  Receive Date: 20200429
  Receipt Date: 20200429
  Transmission Date: 20200714
  Serious: Yes (Other)
  Sender: FDA-Public Use
  Company Number: US-009507513-2004USA008113

PATIENT
  Age: 52 Year
  Sex: Male

DRUGS (1)
  1. INTRON A [Suspect]
     Active Substance: INTERFERON ALFA-2B
     Indication: RENAL NEOPLASM
     Dosage: 0.8 MILLILITER, TWICE A WEEK (25 MMU/MDV, STRENGTH: 10 MMU/ML)
     Route: 058
     Dates: start: 20190720, end: 202002

REACTIONS (3)
  - Hypertension [Unknown]
  - Neuropathy peripheral [Unknown]
  - Product use in unapproved indication [Unknown]

NARRATIVE: CASE EVENT DATE: 20190720
